FAERS Safety Report 21289664 (Version 1)
Quarter: 2022Q3

REPORT INFORMATION
  Report Type: Report from Study
  Country: US (occurrence: None)
  Receive Date: 20220902
  Receipt Date: 20220902
  Transmission Date: 20221027
  Serious: Yes (Death)
  Sender: FDA-Public Use
  Company Number: 2022A304955

PATIENT
  Age: 20434 Day
  Sex: Male

DRUGS (3)
  1. TAGRISSO [Suspect]
     Active Substance: OSIMERTINIB
     Indication: Lung carcinoma cell type unspecified stage 0
     Route: 048
     Dates: start: 20220408
  2. TAGRISSO [Suspect]
     Active Substance: OSIMERTINIB
     Indication: Metastases to central nervous system
     Route: 048
     Dates: start: 20220408
  3. TAGRISSO [Suspect]
     Active Substance: OSIMERTINIB
     Indication: Nervous system neoplasm
     Route: 048
     Dates: start: 20220408

REACTIONS (1)
  - Death [Fatal]

NARRATIVE: CASE EVENT DATE: 20220809
